FAERS Safety Report 7745895-9 (Version None)
Quarter: 2011Q3

REPORT INFORMATION
  Report Type: 
  Country: None (occurrence: None)
  Receive Date: 20110913
  Receipt Date: 20110909
  Transmission Date: 20111222
  Serious: No
  Sender: FDA-Public Use
  Company Number: US-PFIZER INC-2011212783

PATIENT
  Sex: Female

DRUGS (3)
  1. LIPITOR [Suspect]
     Dosage: 20 MG, 1X/DAY
     Route: 048
  2. NAMENDA [Concomitant]
     Dosage: UNK
  3. VESICARE [Concomitant]
     Dosage: UNK

REACTIONS (1)
  - SWOLLEN TONGUE [None]
